FAERS Safety Report 23514952 (Version 10)
Quarter: 2024Q4

REPORT INFORMATION
  Report Type: Report from Study
  Country: JP (occurrence: JP)
  Receive Date: 20240212
  Receipt Date: 20241023
  Transmission Date: 20250115
  Serious: Yes (Other)
  Sender: GENMAB
  Company Number: JP-GENMAB-2024-00347

PATIENT
  Age: 74 Year
  Sex: Female
  Weight: 39 kg

DRUGS (7)
  1. EPKINLY [Suspect]
     Active Substance: EPCORITAMAB-BYSP
     Indication: Diffuse large B-cell lymphoma refractory
     Dosage: 0.16 MILLIGRAM, SINGLE, FIRST ADMINISTRATION
     Route: 065
     Dates: start: 20240201, end: 20240201
  2. EPKINLY [Suspect]
     Active Substance: EPCORITAMAB-BYSP
     Dosage: 0.8 MILLIGRAM, SINGLE, SECOND ADMINISTRATION
     Route: 065
     Dates: start: 20240208, end: 20240208
  3. EPKINLY [Suspect]
     Active Substance: EPCORITAMAB-BYSP
     Dosage: 48 MILLIGRAM, THIRD ADMINISTRATION
     Route: 065
     Dates: start: 20240215, end: 20240215
  4. EPKINLY [Suspect]
     Active Substance: EPCORITAMAB-BYSP
     Dosage: 48 MILLIGRAM, WEEKLY, FOURTH ADMINISTRATION, FIFTH ADMINISTRATION, SIXTH ADMINISTRATION
     Route: 065
     Dates: start: 20240307, end: 20240321
  5. CORTICOTROPIN [Concomitant]
     Active Substance: CORTICOTROPIN
     Indication: Prophylaxis
     Dosage: UNK, AT THE ADMINISTRATION OF EPKINLY
     Dates: start: 202402, end: 202403
  6. ANTIHISTAMINES NOS [Concomitant]
     Active Substance: ANTIHISTAMINES NOS
     Indication: Prophylaxis
     Dosage: UNK, AT THE ADMINISTRATION OF EPKINLY
     Dates: start: 202402, end: 202403
  7. UNSPECIFIED INGREDIENT [Concomitant]
     Active Substance: UNSPECIFIED INGREDIENT
     Indication: Prophylaxis
     Dosage: UNK, AT THE ADMINISTRATION OF EPKINLY
     Dates: start: 202402, end: 202403

REACTIONS (8)
  - Inflammatory marker increased [Recovering/Resolving]
  - Bacterial infection [Recovering/Resolving]
  - Haemophagocytic lymphohistiocytosis [Recovered/Resolved]
  - Cytomegalovirus infection [Unknown]
  - Thrombocytopenia [Recovering/Resolving]
  - Pyrexia [Recovered/Resolved]
  - Oedema [Unknown]
  - Productive cough [Unknown]

NARRATIVE: CASE EVENT DATE: 20240101
